FAERS Safety Report 9069737 (Version 1)
Quarter: 2013Q1

REPORT INFORMATION
  Report Type: Report from Study
  Country: US (occurrence: US)
  Receive Date: 20130131
  Receipt Date: 20130131
  Transmission Date: 20140127
  Serious: No
  Sender: FDA-Public Use
  Company Number: US-ABBOTT-12P-163-1005538-00

PATIENT
  Age: 74 Year
  Sex: Male

DRUGS (12)
  1. HUMIRA [Suspect]
     Indication: PSORIATIC ARTHROPATHY
     Dates: start: 20121023
  2. LIPITOR [Concomitant]
     Indication: BLOOD CHOLESTEROL
  3. LOSARTAN [Concomitant]
     Indication: HYPERTENSION
     Dosage: 100/25 MG, 1/2 PILL DAILY
  4. FISH OIL [Concomitant]
     Indication: PRODUCT USED FOR UNKNOWN INDICATION
  5. CO Q10 [Concomitant]
     Indication: PRODUCT USED FOR UNKNOWN INDICATION
  6. FOLIC ACID [Concomitant]
     Indication: PRODUCT USED FOR UNKNOWN INDICATION
  7. CENTRUM SILVER [Concomitant]
     Indication: PRODUCT USED FOR UNKNOWN INDICATION
  8. TEMAZEPAM [Concomitant]
     Indication: INSOMNIA
  9. XANAX [Concomitant]
     Indication: ANXIETY
     Dosage: DOES NOT TAKE TOO OFTEN
  10. XANAX [Concomitant]
     Indication: INSOMNIA
  11. SCHIFF MOVE FREE [Concomitant]
     Indication: ARTHRALGIA
     Dosage: DOES NOT HELP
  12. PAMELOR [Concomitant]
     Indication: GASTRIC DISORDER
     Dates: start: 2012

REACTIONS (6)
  - Visual impairment [Not Recovered/Not Resolved]
  - Arthralgia [Not Recovered/Not Resolved]
  - Gait disturbance [Not Recovered/Not Resolved]
  - Arthropathy [Not Recovered/Not Resolved]
  - Musculoskeletal stiffness [Not Recovered/Not Resolved]
  - Feeling abnormal [Not Recovered/Not Resolved]
